FAERS Safety Report 17115914 (Version 1)
Quarter: 2019Q4

REPORT INFORMATION
  Report Type: Spontaneous
  Country: US (occurrence: US)
  Receive Date: 20191205
  Receipt Date: 20191205
  Transmission Date: 20200122
  Serious: No
  Sender: FDA-Public Use
  Company Number: US-PFIZER INC-2019524508

PATIENT
  Sex: Male

DRUGS (11)
  1. LISINOPRIL. [Concomitant]
     Active Substance: LISINOPRIL
     Dosage: UNK (TAKING IN THE MORNING)
  2. VITAMIN B12 [Concomitant]
     Active Substance: CYANOCOBALAMIN
     Dosage: UNK, 2X/DAY (IN THE MORNING AND EVENING)
  3. METFORMIN [Concomitant]
     Active Substance: METFORMIN HYDROCHLORIDE
     Dosage: UNK, 2X/DAY (IN THE MORNING AND EVENING)
  4. LEVOTHYROXINE. [Concomitant]
     Active Substance: LEVOTHYROXINE
     Dosage: UNK (TAKING IN THE MORNING)
  5. PANTOPROL [Concomitant]
     Dosage: UNK (TAKING IN THE MORNING)
  6. LYRICA [Suspect]
     Active Substance: PREGABALIN
     Dosage: 25 MG, 3X/DAY
  7. SIMVASTATIN. [Concomitant]
     Active Substance: SIMVASTATIN
     Dosage: UNK (IN THE EVENING HE TAKES)
  8. ASPIRIN. [Concomitant]
     Active Substance: ASPIRIN
     Dosage: UNK (TAKING IN THE MORNING)
  9. BUSPIRONE [Concomitant]
     Active Substance: BUSPIRONE HYDROCHLORIDE
     Dosage: UNK (TAKING IN THE MORNING)
  10. FISH OIL [Concomitant]
     Active Substance: FISH OIL
     Dosage: UNK, 2X/DAY (IN THE MORNING AND EVENING)
  11. METOPROLOL. [Concomitant]
     Active Substance: METOPROLOL
     Dosage: UNK, 2X/DAY (IN THE MORNING AND EVENING)

REACTIONS (3)
  - Chest discomfort [Unknown]
  - Neuralgia [Unknown]
  - Chest pain [Unknown]
